FAERS Safety Report 10217287 (Version 1)
Quarter: 2014Q2

REPORT INFORMATION
  Report Type: Spontaneous
  Country: US (occurrence: US)
  Receive Date: 20140604
  Receipt Date: 20140604
  Transmission Date: 20141212
  Serious: No
  Sender: FDA-Public Use
  Company Number: US-PFIZER INC-2014153082

PATIENT
  Age: 58 Year
  Sex: Female
  Weight: 136 kg

DRUGS (3)
  1. LYRICA [Suspect]
     Indication: SPINAL COLUMN INJURY
     Dosage: 150 MG, DAILY
  2. LYRICA [Suspect]
     Dosage: 300 MG, DAILY
  3. LYRICA [Suspect]
     Dosage: UNK, DAILY
     Dates: end: 2014

REACTIONS (1)
  - Drug ineffective [Unknown]
